FAERS Safety Report 18245583 (Version 2)
Quarter: 2020Q4

REPORT INFORMATION
  Report Type: Spontaneous
  Country: US (occurrence: US)
  Receive Date: 20200909
  Receipt Date: 20201008
  Transmission Date: 20210113
  Serious: Yes (Hospitalization, Other)
  Sender: FDA-Public Use
  Company Number: US-ALKEM LABORATORIES LIMITED-US-ALKEM-2020-05601

PATIENT
  Age: 62 Year
  Sex: Male
  Weight: 100 kg

DRUGS (9)
  1. FAMOTIDINE. [Concomitant]
     Active Substance: FAMOTIDINE
     Indication: PRODUCT USED FOR UNKNOWN INDICATION
     Dosage: 20 MILLIGRAM, BID
     Route: 048
  2. LEVETIRACETAM. [Concomitant]
     Active Substance: LEVETIRACETAM
     Indication: PRODUCT USED FOR UNKNOWN INDICATION
     Dosage: 1000 MILLIGRAM, BID
     Route: 048
  3. HEPARIN [Concomitant]
     Active Substance: HEPARIN SODIUM
     Indication: PRODUCT USED FOR UNKNOWN INDICATION
     Dosage: UNK UNITS
     Route: 058
  4. POTASSIUM PHOSPHATE AND SODIUM PHOSPHATE [Concomitant]
     Indication: PRODUCT USED FOR UNKNOWN INDICATION
     Dosage: 500 MILLIGRAM, TID
     Route: 048
  5. ATORVASTATIN [Concomitant]
     Active Substance: ATORVASTATIN
     Indication: PRODUCT USED FOR UNKNOWN INDICATION
     Dosage: 80 MILLIGRAM, QD
     Route: 048
  6. NIMODIPINE. [Suspect]
     Active Substance: NIMODIPINE
     Dosage: 30 MILLIGRAM, Q2 HOURS
     Route: 065
  7. NIMODIPINE. [Suspect]
     Active Substance: NIMODIPINE
     Indication: SUBARACHNOID HAEMORRHAGE
     Dosage: 60 MILLIGRAM, Q 4 HOURS
     Route: 065
  8. LISINOPRIL. [Concomitant]
     Active Substance: LISINOPRIL
     Indication: ESSENTIAL HYPERTENSION
     Dosage: UNK
     Route: 065
  9. DOCUSATE SODIUM. [Concomitant]
     Active Substance: DOCUSATE SODIUM
     Indication: PRODUCT USED FOR UNKNOWN INDICATION
     Dosage: 250 MILLIGRAM, BID
     Route: 048

REACTIONS (3)
  - Hypoxia [Recovered/Resolved]
  - Respiratory distress [Recovered/Resolved]
  - Tachypnoea [Recovered/Resolved]
